FAERS Safety Report 4910093-0 (Version None)
Quarter: 2006Q1

REPORT INFORMATION
  Report Type: 
  Country: None (occurrence: None)
  Receive Date: 20060209
  Receipt Date: 20060128
  Transmission Date: 20060701
  Serious: Yes (Hospitalization)
  Sender: FDA-Public Use
  Company Number: 2006PV007882

PATIENT
  Age: 48 Year
  Sex: Male
  Weight: 100.6985 kg

DRUGS (9)
  1. BYETTA [Suspect]
     Indication: DIABETES MELLITUS NON-INSULIN-DEPENDENT
     Dosage: 5 MCG BID SC; 5 MCG QD SC; 10 MCG QD SC; 5 MCG QD SC
     Route: 058
     Dates: start: 20050901, end: 20051001
  2. BYETTA [Suspect]
     Indication: DIABETES MELLITUS NON-INSULIN-DEPENDENT
     Dosage: 5 MCG BID SC; 5 MCG QD SC; 10 MCG QD SC; 5 MCG QD SC
     Route: 058
     Dates: start: 20051001, end: 20051001
  3. BYETTA [Suspect]
     Indication: DIABETES MELLITUS NON-INSULIN-DEPENDENT
     Dosage: 5 MCG BID SC; 5 MCG QD SC; 10 MCG QD SC; 5 MCG QD SC
     Route: 058
     Dates: start: 20050101, end: 20060101
  4. BYETTA [Suspect]
     Indication: DIABETES MELLITUS NON-INSULIN-DEPENDENT
     Dosage: 5 MCG BID SC; 5 MCG QD SC; 10 MCG QD SC; 5 MCG QD SC
     Route: 058
     Dates: start: 20060101
  5. AMARYL [Concomitant]
  6. METFORMIN [Concomitant]
  7. HYDROCHLOROTHIAZIDE [Concomitant]
  8. LEVAQUIN [Concomitant]
  9. ALTACE [Concomitant]

REACTIONS (4)
  - BLOOD GLUCOSE DECREASED [None]
  - DECREASED APPETITE [None]
  - PNEUMONIA [None]
  - WEIGHT DECREASED [None]
